FAERS Safety Report 6557176-X (Version None)
Quarter: 2010Q1

REPORT INFORMATION
  Report Type: 
  Country: None (occurrence: None)
  Receive Date: 20100127
  Receipt Date: 20100127
  Transmission Date: 20100710
  Serious: Yes (Hospitalization)
  Sender: FDA-Public Use
  Company Number: None

PATIENT
  Sex: Male
  Weight: 116.7 kg

DRUGS (3)
  1. TAXOTERE [Suspect]
     Dosage: 177 MG
  2. LASIX [Concomitant]
  3. METOPROLOL TARTRATE [Concomitant]

REACTIONS (6)
  - ATRIAL FIBRILLATION [None]
  - CELLULITIS [None]
  - NEUTROPHIL COUNT INCREASED [None]
  - PALMAR-PLANTAR ERYTHRODYSAESTHESIA SYNDROME [None]
  - STASIS DERMATITIS [None]
  - WHITE BLOOD CELL COUNT INCREASED [None]
